FAERS Safety Report 13621300 (Version 1)
Quarter: 2017Q2

REPORT INFORMATION
  Report Type: Spontaneous
  Country: JP (occurrence: JP)
  Receive Date: 20170607
  Receipt Date: 20170607
  Transmission Date: 20170830
  Serious: Yes (Life-Threatening, Hospitalization)
  Sender: FDA-Public Use
  Company Number: PHJP2017JP018439

PATIENT
  Age: 70 Year
  Sex: Male

DRUGS (2)
  1. NEORAL [Suspect]
     Active Substance: CYCLOSPORINE
     Indication: DERMATITIS EXFOLIATIVE
     Dosage: 150 MG, UNK
     Route: 048
     Dates: start: 20170215, end: 201703
  2. PREDONINE [Suspect]
     Active Substance: PREDNISOLONE
     Indication: DERMATITIS EXFOLIATIVE
     Dosage: 15 MG, UNK
     Route: 048
     Dates: start: 20161209, end: 20170214

REACTIONS (9)
  - Brain abscess [Not Recovered/Not Resolved]
  - Asthenia [Unknown]
  - Product use in unapproved indication [Unknown]
  - Hypophagia [Unknown]
  - Acute kidney injury [Recovered/Resolved]
  - Dehydration [Unknown]
  - Staphylococcal infection [Recovered/Resolved]
  - Altered state of consciousness [Not Recovered/Not Resolved]
  - Body temperature increased [Unknown]

NARRATIVE: CASE EVENT DATE: 20170215
